FAERS Safety Report 20586702 (Version 2)
Quarter: 2022Q2

REPORT INFORMATION
  Report Type: Spontaneous
  Country: JP (occurrence: JP)
  Receive Date: 20220313
  Receipt Date: 20220404
  Transmission Date: 20220721
  Serious: Yes (Other)
  Sender: FDA-Public Use
  Company Number: JP-ONO-2022JP006773

PATIENT
  Age: 5 Decade

DRUGS (2)
  1. KYPROLIS [Suspect]
     Active Substance: CARFILZOMIB
     Indication: Plasma cell myeloma
     Dosage: 40 MG/M2, QW
     Route: 041
     Dates: start: 20201015, end: 20220303
  2. KYPROLIS [Suspect]
     Active Substance: CARFILZOMIB
     Dosage: 40 MG/M2, QW
     Route: 041
     Dates: start: 20220317

REACTIONS (3)
  - Shunt occlusion [Recovering/Resolving]
  - Nausea [Recovering/Resolving]
  - Vomiting [Recovering/Resolving]

NARRATIVE: CASE EVENT DATE: 20220301
